FAERS Safety Report 11931977 (Version 1)
Quarter: 2016Q1

REPORT INFORMATION
  Report Type: Spontaneous
  Country: US (occurrence: US)
  Receive Date: 20160120
  Receipt Date: 20160120
  Transmission Date: 20160526
  Serious: No
  Sender: FDA-Public Use
  Company Number: US-PFIZER INC-2016027664

PATIENT
  Age: 67 Year
  Sex: Female
  Weight: 69.4 kg

DRUGS (5)
  1. AROMASIN [Suspect]
     Active Substance: EXEMESTANE
     Dosage: 5 DF, WEEKLY
  2. AROMASIN [Suspect]
     Active Substance: EXEMESTANE
     Dosage: 3 DF, WEEKLY
  3. AROMASIN [Suspect]
     Active Substance: EXEMESTANE
     Indication: BREAST CANCER FEMALE
     Dosage: TAKING 7 TABLETS, AT 1 A DAY
  4. EXEMESTANE. [Suspect]
     Active Substance: EXEMESTANE
     Indication: BREAST CANCER FEMALE
     Dosage: 25 MG TABLETS;4 TABLETS PER DAY
     Route: 048
  5. AROMASIN [Suspect]
     Active Substance: EXEMESTANE
     Dosage: 2 DF, WEEKLY
     Dates: start: 201510

REACTIONS (5)
  - Pruritus [Not Recovered/Not Resolved]
  - Depression [Not Recovered/Not Resolved]
  - Mood altered [Unknown]
  - Alopecia [Not Recovered/Not Resolved]
  - Drug intolerance [Not Recovered/Not Resolved]

NARRATIVE: CASE EVENT DATE: 201508
